FAERS Safety Report 6547893-X (Version None)
Quarter: 2010Q1

REPORT INFORMATION
  Report Type: 
  Country: None (occurrence: None)
  Receive Date: 20100124
  Receipt Date: 20091112
  Transmission Date: 20100710
  Serious: No
  Sender: FDA-Public Use
  Company Number: US-ALEXION-A200900200

PATIENT

DRUGS (2)
  1. SOLIRIS [Suspect]
     Indication: PAROXYSMAL NOCTURNAL HAEMOGLOBINURIA
     Dosage: UNK, Q2W
     Route: 042
     Dates: end: 20090220
  2. PREDNISONE [Concomitant]
     Dosage: 20 MG, UNK

REACTIONS (3)
  - FATIGUE [None]
  - PLATELET COUNT DECREASED [None]
  - PREGNANCY [None]
